FAERS Safety Report 5468036-X (Version None)
Quarter: 2007Q3

REPORT INFORMATION
  Report Type: 
  Country: None (occurrence: None)
  Receive Date: 20070926
  Receipt Date: 20070914
  Transmission Date: 20080115
  Serious: Yes (Hospitalization, Congenital Anomaly)
  Sender: FDA-Public Use
  Company Number: JP-ELI_LILLY_AND_COMPANY-JP200709000101

PATIENT
  Weight: 2.704 kg

DRUGS (1)
  1. ZYPREXA [Suspect]
     Indication: PSYCHOTIC DISORDER
     Route: 064
     Dates: start: 20070423, end: 20070605

REACTIONS (2)
  - DRUG EXPOSURE DURING PREGNANCY [None]
  - PORENCEPHALY [None]
